FAERS Safety Report 9894146 (Version 3)
Quarter: 2014Q2

REPORT INFORMATION
  Report Type: Spontaneous
  Country: US (occurrence: US)
  Receive Date: 20140213
  Receipt Date: 20140403
  Transmission Date: 20141212
  Serious: No
  Sender: FDA-Public Use
  Company Number: US-PFIZER INC-2014038831

PATIENT
  Age: 80 Year
  Sex: Female

DRUGS (2)
  1. INLYTA [Suspect]
     Indication: RENAL CANCER
     Dosage: 5 MG, 2X/DAY (TAKE 1 EVERY 12 HOURS)
     Route: 048
     Dates: start: 20140116
  2. INLYTA [Suspect]
     Dosage: 5 MG, 2X/DAY (TAKE 1 EVERY 12 HOURS)
     Dates: start: 20140117, end: 20140210

REACTIONS (1)
  - Blood pressure increased [Unknown]
